FAERS Safety Report 8906462 (Version 1)
Quarter: 2012Q4

REPORT INFORMATION
  Report Type: Spontaneous
  Country: US (occurrence: None)
  Receive Date: 20121112
  Receipt Date: 20121112
  Transmission Date: 20130627
  Serious: Yes (Hospitalization, Disabling)
  Sender: FDA-Public Use
  Company Number: None

PATIENT
  Age: 44 Year
  Sex: Male
  Weight: 79.5 kg

DRUGS (3)
  1. LARIAM [Suspect]
     Indication: BRAIN STEM DISORDER
     Dosage: 250mg weely oral
     Route: 048
     Dates: start: 200211, end: 20030512
  2. LARIAM [Suspect]
     Indication: VESTIBULAR DISORDER
     Dosage: 250mg weely oral
     Route: 048
     Dates: start: 200211, end: 20030512
  3. LARIAM [Suspect]
     Indication: VISUAL IMPAIRMENT
     Dosage: 250mg weely oral
     Route: 048
     Dates: start: 200211, end: 20030512

REACTIONS (1)
  - Multiple injuries [None]
